FAERS Safety Report 17638418 (Version 1)
Quarter: 2020Q2

REPORT INFORMATION
  Report Type: Spontaneous
  Country: AU (occurrence: AU)
  Receive Date: 20200407
  Receipt Date: 20200407
  Transmission Date: 20200713
  Serious: Yes (Other)
  Sender: FDA-Public Use
  Company Number: AU-ACELLA PHARMACEUTICALS, LLC-2082428

PATIENT
  Age: 59 Year
  Sex: Female

DRUGS (3)
  1. GUAIFENESIN. [Concomitant]
     Active Substance: GUAIFENESIN
     Route: 065
  2. THYROXINE [Concomitant]
     Active Substance: LEVOTHYROXINE
     Route: 065
  3. BROMPHENIRAMINE MAL, PSEUDOEPHEDRINE HCL, AND DEXTROMETHORPHAN HBR (AN [Suspect]
     Active Substance: DEXBROMPHENIRAMINE MALEATE\DEXTROMETHORPHAN HYDROBROMIDE\PSEUDOEPHEDRINE HYDROCHLORIDE
     Indication: PRODUCT USED FOR UNKNOWN INDICATION
     Route: 048

REACTIONS (3)
  - Vision blurred [Unknown]
  - Headache [Unknown]
  - Angle closure glaucoma [Recovering/Resolving]
